FAERS Safety Report 20828224 (Version 1)
Quarter: 2022Q2

REPORT INFORMATION
  Report Type: Spontaneous
  Country: US (occurrence: None)
  Receive Date: 20220513
  Receipt Date: 20220513
  Transmission Date: 20220721
  Serious: Yes (Other)
  Sender: FDA-Public Use
  Company Number: None

PATIENT
  Age: 64 Year
  Sex: Female

DRUGS (6)
  1. BEBTELOVIMAB [Suspect]
     Active Substance: BEBTELOVIMAB
     Indication: COVID-19
     Dosage: OTHER FREQUENCY : ONCE;?
     Route: 042
     Dates: start: 20220509, end: 20220509
  2. ASCORBATE CALCIUM (VITAMIN C ORAL) [Concomitant]
  3. cholecalciferol, vitamin D3, 400 unit capsule [Concomitant]
  4. cyanocobalamin (VITAMIN B-12) 100 mcg tablet, daily [Concomitant]
  5. multivitamin (THERAGRAN) tablet [Concomitant]
  6. triamcinolone (KENALOG) 0.1 % cream, apply BID on weekends only. [Concomitant]

REACTIONS (7)
  - Nausea [None]
  - Rash [None]
  - Urticaria [None]
  - Feeling abnormal [None]
  - Infusion related reaction [None]
  - Fatigue [None]
  - Oxygen saturation decreased [None]

NARRATIVE: CASE EVENT DATE: 20220509
